FAERS Safety Report 12470919 (Version 5)
Quarter: 2018Q2

REPORT INFORMATION
  Report Type: Report from Study
  Country: BR (occurrence: BR)
  Receive Date: 20160616
  Receipt Date: 20180628
  Transmission Date: 20180711
  Serious: Yes (Hospitalization)
  Sender: FDA-Public Use
  Company Number: PHHY2016BR082453

PATIENT
  Sex: Female
  Weight: 52 kg

DRUGS (4)
  1. EXJADE [Suspect]
     Active Substance: DEFERASIROX
     Indication: MYELODYSPLASTIC SYNDROME
     Dosage: 20 MG/KG (2 DF OF 500 MG), QD
     Route: 048
     Dates: start: 2015
  2. CRONOBE [Concomitant]
     Active Substance: COBAMAMIDE
     Indication: MYELODYSPLASTIC SYNDROME
     Dosage: 1 DF, EVERY 15 DAYS
     Route: 030
  3. EXJADE [Suspect]
     Active Substance: DEFERASIROX
     Dosage: 10000 MG, QD
     Route: 065
  4. ACIDO FOLICO//FOLIC ACID [Concomitant]
     Active Substance: FOLIC ACID
     Indication: MYELODYSPLASTIC SYNDROME
     Dosage: 1 DF, QD
     Route: 048

REACTIONS (15)
  - Asthenia [Unknown]
  - Diarrhoea [Unknown]
  - Serum ferritin decreased [Unknown]
  - Nausea [Recovering/Resolving]
  - Bacteriuria [Recovering/Resolving]
  - Drug ineffective [Unknown]
  - Pneumonia [Recovering/Resolving]
  - Vomiting [Unknown]
  - Urinary tract infection [Recovering/Resolving]
  - Haemoglobin decreased [Not Recovered/Not Resolved]
  - Cough [Unknown]
  - Malaise [Unknown]
  - Dyspnoea [Recovered/Resolved]
  - Weight decreased [Unknown]
  - Serum ferritin increased [Unknown]
